FAERS Safety Report 8122151-0 (Version None)
Quarter: 2012Q1

REPORT INFORMATION
  Report Type: 
  Country: None (occurrence: None)
  Receive Date: 20120208
  Receipt Date: 20120123
  Transmission Date: 20120608
  Serious: Yes (Hospitalization, Other)
  Sender: FDA-Public Use
  Company Number: JP-ROCHE-725157

PATIENT
  Sex: Female

DRUGS (46)
  1. ACTEMRA [Suspect]
     Route: 041
     Dates: start: 20100817, end: 20100817
  2. PREDNISOLONE [Concomitant]
     Route: 048
     Dates: start: 20100622, end: 20100914
  3. PREDNISOLONE [Concomitant]
     Route: 048
     Dates: start: 20100915, end: 20101207
  4. FLURBIPROFEN [Concomitant]
     Dosage: FORM: TAPE
     Route: 062
  5. FAMOTIDINE [Concomitant]
     Route: 048
  6. CELECOXIB [Concomitant]
     Dosage: DRUG:CELECOX(CELECOXIB)
     Route: 048
     Dates: start: 20100914, end: 20101208
  7. ALLEGRA [Concomitant]
     Route: 048
     Dates: start: 20101109, end: 20101123
  8. PREDNISOLONE [Concomitant]
     Route: 048
     Dates: start: 20080814, end: 20080910
  9. PREDNISOLONE [Concomitant]
     Route: 048
     Dates: start: 20081009, end: 20081105
  10. FOLIC ACID [Concomitant]
     Route: 048
     Dates: start: 20100622, end: 20101208
  11. ACTEMRA [Suspect]
     Route: 041
     Dates: start: 20080717, end: 20080717
  12. ACTEMRA [Suspect]
     Route: 041
     Dates: start: 20080911, end: 20080911
  13. ACTEMRA [Suspect]
     Route: 041
     Dates: start: 20081106, end: 20081106
  14. ACTEMRA [Suspect]
     Route: 041
     Dates: start: 20090519, end: 20090519
  15. ACTEMRA [Suspect]
     Route: 041
     Dates: start: 20100525, end: 20100525
  16. ACTEMRA [Suspect]
     Route: 041
     Dates: start: 20100914, end: 20100914
  17. PREDNISOLONE [Concomitant]
     Route: 048
     Dates: start: 20081106, end: 20081203
  18. PREDNISOLONE [Concomitant]
     Route: 048
  19. VOLTAREN [Concomitant]
     Route: 048
  20. ALLEGRA [Concomitant]
     Dosage: ALLEGRA(FEXOFENADINE HYDROCHLORIDE)
     Route: 048
     Dates: start: 20101012, end: 20101019
  21. ACTEMRA [Suspect]
     Route: 041
     Dates: start: 20080814, end: 20080814
  22. ACTEMRA [Suspect]
     Route: 041
     Dates: start: 20081009, end: 20081009
  23. ACTEMRA [Suspect]
     Route: 041
     Dates: start: 20081204, end: 20081204
  24. ACTEMRA [Suspect]
     Route: 041
     Dates: start: 20100427, end: 20100427
  25. ACTEMRA [Suspect]
     Route: 041
     Dates: start: 20100622, end: 20100622
  26. PREDNISOLONE [Concomitant]
     Indication: RHEUMATOID ARTHRITIS
     Route: 048
  27. CLARITHROMYCIN [Concomitant]
     Route: 048
  28. ACTEMRA [Suspect]
     Route: 041
     Dates: start: 20090714, end: 20100302
  29. ACTEMRA [Suspect]
     Route: 041
     Dates: start: 20101109, end: 20101109
  30. PREDNISOLONE [Concomitant]
     Route: 048
     Dates: start: 20080718, end: 20080813
  31. ACTEMRA [Suspect]
     Indication: RHEUMATOID ARTHRITIS
     Route: 041
     Dates: start: 20080119, end: 20080619
  32. ACTEMRA [Suspect]
     Route: 041
     Dates: start: 20080226, end: 20080226
  33. ACTEMRA [Suspect]
     Route: 041
     Dates: start: 20101012, end: 20101012
  34. FERROUS CITRATE [Concomitant]
     Route: 048
     Dates: start: 20100817, end: 20101208
  35. ACTEMRA [Suspect]
     Route: 041
     Dates: start: 20080108, end: 20080108
  36. ACTEMRA [Suspect]
     Route: 041
     Dates: start: 20080129, end: 20080129
  37. ACTEMRA [Suspect]
     Route: 041
     Dates: start: 20090326, end: 20090326
  38. ACTEMRA [Suspect]
     Route: 041
     Dates: start: 20090616, end: 20090616
  39. ACTEMRA [Suspect]
     Route: 041
     Dates: start: 20100330, end: 20100330
  40. ACTEMRA [Suspect]
     Route: 041
     Dates: start: 20100720, end: 20100720
  41. PREDNISOLONE [Concomitant]
     Route: 048
     Dates: start: 20080911, end: 20081008
  42. CYTOTEC [Concomitant]
     Route: 048
  43. RHEUMATREX [Concomitant]
     Route: 048
     Dates: start: 20100622, end: 20101208
  44. ACTEMRA [Suspect]
     Route: 041
     Dates: start: 20090412, end: 20090412
  45. ACTEMRA [Suspect]
     Route: 041
     Dates: start: 20101207, end: 20101207
  46. ONON [Concomitant]
     Route: 048

REACTIONS (5)
  - C-REACTIVE PROTEIN INCREASED [None]
  - UPPER RESPIRATORY TRACT INFLAMMATION [None]
  - WHEEZING [None]
  - PERICARDIAL EFFUSION [None]
  - BRONCHITIS [None]
